FAERS Safety Report 13737746 (Version 1)
Quarter: 2017Q3

REPORT INFORMATION
  Report Type: Spontaneous
  Country: US (occurrence: US)
  Receive Date: 20170710
  Receipt Date: 20170710
  Transmission Date: 20171127
  Serious: No
  Sender: FDA-Public Use
  Company Number: US-SAOL THERAPEUTICS-2016SAO00668

PATIENT
  Age: 29 Year
  Sex: Female

DRUGS (3)
  1. BACLOFEN. [Suspect]
     Active Substance: BACLOFEN
     Indication: MUSCLE SPASTICITY
     Dosage: 330 ?G,\DAY
     Route: 037
     Dates: end: 20160823
  2. BACLOFEN. [Suspect]
     Active Substance: BACLOFEN
     Indication: HEAD INJURY
     Dosage: 375 ?G. \DAY
     Route: 037
     Dates: start: 20160823
  3. BACLOFEN. [Concomitant]
     Active Substance: BACLOFEN
     Dosage: 1 TABLETS, 2X/DAY
     Route: 048

REACTIONS (4)
  - Device alarm issue [Unknown]
  - Flushing [Unknown]
  - Hypertonia [Unknown]
  - Device battery issue [Unknown]

NARRATIVE: CASE EVENT DATE: 201606
